FAERS Safety Report 5664664-7 (Version None)
Quarter: 2008Q1

REPORT INFORMATION
  Report Type: 
  Country: None (occurrence: None)
  Receive Date: 20080314
  Receipt Date: 20080213
  Transmission Date: 20080703
  Serious: Yes (Congenital Anomaly)
  Sender: FDA-Public Use
  Company Number: PR-ROCHE-547552

PATIENT
  Sex: Female
  Weight: 1.8 kg

DRUGS (7)
  1. SAQUINAVIR [Suspect]
     Indication: DRUG USE FOR UNKNOWN INDICATION
     Dates: start: 20070917
  2. NELFINAVIR [Suspect]
     Indication: HIV INFECTION
     Dates: start: 20070828, end: 20070917
  3. COMBIVIR [Suspect]
     Indication: HIV INFECTION
     Dates: start: 20070828
  4. RITONAVIR [Suspect]
     Indication: DRUG USE FOR UNKNOWN INDICATION
     Dates: start: 20070917
  5. FOLIC ACID [Concomitant]
     Dosage: DRUG TRADE NAME REPORTED AS ^FOLATE^
  6. METRONIDAZOLE HCL [Concomitant]
  7. ZANTAC [Concomitant]
     Dosage: GENERIC NAME REPORTED AS ^RANITIDINE HYDROCHLORIDE^

REACTIONS (4)
  - ARTERIOVENOUS MALFORMATION [None]
  - PATENT DUCTUS ARTERIOSUS [None]
  - PREGNANCY [None]
  - TRISOMY 21 [None]
